FAERS Safety Report 4766009-3 (Version None)
Quarter: 2005Q3

REPORT INFORMATION
  Report Type: 
  Country: None (occurrence: None)
  Receive Date: 20050912
  Receipt Date: 20041203
  Transmission Date: 20060218
  Serious: Yes (Other)
  Sender: FDA-Public Use
  Company Number: GB-GLAXOSMITHKLINE-B0359825A

PATIENT
  Sex: Male

DRUGS (2)
  1. SEROXAT [Suspect]
     Indication: DEPRESSION
     Route: 065
     Dates: start: 19960101
  2. PAROXETINE HYDROCHLORIDE [Suspect]
     Route: 048

REACTIONS (11)
  - AGGRESSION [None]
  - ANXIETY [None]
  - DEPRESSED MOOD [None]
  - DRUG ABUSER [None]
  - DRUG DEPENDENCE [None]
  - DRUG WITHDRAWAL SYNDROME [None]
  - FEELING ABNORMAL [None]
  - ILL-DEFINED DISORDER [None]
  - PATHOLOGICAL GAMBLING [None]
  - SLEEP DISORDER [None]
  - STRESS [None]
